FAERS Safety Report 19118247 (Version 1)
Quarter: 2021Q2

REPORT INFORMATION
  Report Type: Spontaneous
  Country: US (occurrence: US)
  Receive Date: 20210409
  Receipt Date: 20210409
  Transmission Date: 20210717
  Serious: No
  Sender: FDA-Public Use
  Company Number: US-SA-2021SA116638

PATIENT
  Age: 70 Year
  Sex: Female

DRUGS (1)
  1. LOVENOX [Suspect]
     Active Substance: ENOXAPARIN SODIUM
     Indication: URINARY BLADDER HAEMORRHAGE
     Dosage: DRUG STRUCTURE DOSAGE : 60MG DRUG INTERVAL DOSAGE : BID
     Route: 065
     Dates: start: 20201006

REACTIONS (2)
  - Injection site mass [Unknown]
  - Injection site bruising [Unknown]
